FAERS Safety Report 19098197 (Version 1)
Quarter: 2021Q2

REPORT INFORMATION
  Report Type: Spontaneous
  Country: US (occurrence: US)
  Receive Date: 20210406
  Receipt Date: 20210406
  Transmission Date: 20210717
  Serious: Yes (Hospitalization, Other)
  Sender: FDA-Public Use
  Company Number: US-SA-2021SA103418

PATIENT
  Age: 67 Year
  Sex: Female

DRUGS (2)
  1. METFORMIN HYDROCHLORIDE. [Suspect]
     Active Substance: METFORMIN HYDROCHLORIDE
     Dosage: UNK
     Route: 065
  2. LANTUS SOLOSTAR [Suspect]
     Active Substance: INSULIN GLARGINE
     Dosage: 40?44 UNITS EVENING
     Route: 065

REACTIONS (12)
  - Pancreatitis [Unknown]
  - Abdominal distension [Unknown]
  - Drug hypersensitivity [Recovering/Resolving]
  - Swelling face [Recovering/Resolving]
  - Skin mass [Unknown]
  - Weight increased [Unknown]
  - Cough [Unknown]
  - Pruritus [Unknown]
  - Peripheral swelling [Recovering/Resolving]
  - Eye swelling [Unknown]
  - Intentional product misuse [Unknown]
  - Stress [Unknown]

NARRATIVE: CASE EVENT DATE: 202103
